APPROVED DRUG PRODUCT: EFFIENT
Active Ingredient: PRASUGREL HYDROCHLORIDE
Strength: EQ 10MG BASE
Dosage Form/Route: TABLET;ORAL
Application: N022307 | Product #002 | TE Code: AB
Applicant: COSETTE PHARMACEUTICALS INC
Approved: Jul 10, 2009 | RLD: Yes | RS: Yes | Type: RX